FAERS Safety Report 8395355-X (Version None)
Quarter: 2012Q2

REPORT INFORMATION
  Report Type: 
  Country: None (occurrence: None)
  Receive Date: 20120530
  Receipt Date: 20120522
  Transmission Date: 20120825
  Serious: No
  Sender: FDA-Public Use
  Company Number: US-ASTRAZENECA-2012SE33342

PATIENT
  Age: 74 Year
  Sex: Female

DRUGS (1)
  1. TOPROL-XL [Suspect]
     Route: 048

REACTIONS (2)
  - ARTHRITIS [None]
  - GASTRIC DISORDER [None]
